FAERS Safety Report 5171655-1 (Version None)
Quarter: 2006Q4

REPORT INFORMATION
  Report Type: 
  Country: None (occurrence: None)
  Receive Date: 20061205
  Receipt Date: 20061121
  Transmission Date: 20070319
  Serious: Yes (Hospitalization, Other)
  Sender: FDA-Public Use
  Company Number: 2005121161

PATIENT
  Age: 28 Year
  Sex: Female

DRUGS (6)
  1. NEURONTIN [Suspect]
     Indication: BIPOLAR DISORDER
     Dosage: 600 MG (200 MG, 3 IN 1 D), ORAL
     Route: 048
  2. TYLENOL PM (DIPHENHYDRAMINE, PARACETAMOL) [Suspect]
     Dosage: ORAL
     Route: 048
  3. METHAMPHETAMINE (METHAMPHETAMINE) [Suspect]
     Dates: start: 20020101
  4. ALCOHOL (ETHANOL) [Suspect]
     Dosage: ORAL
     Route: 048
  5. SEROQUEL [Concomitant]
  6. EFFEXOR XR [Concomitant]

REACTIONS (12)
  - ABNORMAL BEHAVIOUR [None]
  - CONDITION AGGRAVATED [None]
  - DEPRESSION [None]
  - DIVORCED [None]
  - DRUG ABUSER [None]
  - DRUG INEFFECTIVE [None]
  - INTENTIONAL OVERDOSE [None]
  - INTENTIONAL SELF-INJURY [None]
  - LACERATION [None]
  - MANIA [None]
  - SUICIDAL IDEATION [None]
  - SUICIDE ATTEMPT [None]
